FAERS Safety Report 24613963 (Version 1)
Quarter: 2024Q4

REPORT INFORMATION
  Report Type: Report from Study
  Country: US (occurrence: US)
  Receive Date: 20241113
  Receipt Date: 20241113
  Transmission Date: 20250114
  Serious: Yes (Other)
  Sender: JOHNSON AND JOHNSON
  Company Number: US-JNJFOC-20241127568

PATIENT
  Age: 64 Year
  Sex: Male

DRUGS (1)
  1. ELMIRON [Suspect]
     Active Substance: PENTOSAN POLYSULFATE SODIUM
     Indication: Product used for unknown indication
     Dosage: LONGITUDINAL FOLLOW-UP FOR 4.1 MONTHS
     Route: 065
     Dates: end: 2020

REACTIONS (3)
  - Retinopathy [Unknown]
  - Retinal degeneration [Unknown]
  - Off label use [Unknown]
